FAERS Safety Report 6061063-3 (Version None)
Quarter: 2009Q1

REPORT INFORMATION
  Report Type: 
  Country: None (occurrence: None)
  Receive Date: 20090202
  Receipt Date: 20090122
  Transmission Date: 20090719
  Serious: Yes (Other)
  Sender: FDA-Public Use
  Company Number: US-SANOFI-SYNTHELABO-A03200900326

PATIENT
  Age: 36 Year
  Sex: Male

DRUGS (2)
  1. AMBIEN [Suspect]
     Indication: DRUG USE FOR UNKNOWN INDICATION
     Dosage: 20 TO 60 MG ONCE DAILY
     Route: 048
     Dates: start: 20010101, end: 20081219
  2. AMBIEN [Suspect]
     Dosage: TOOK 20 TO 25 TABLETS ONCE
     Route: 048
     Dates: start: 20081220

REACTIONS (5)
  - DRUG ABUSE [None]
  - DYSTONIA [None]
  - EPILEPSY [None]
  - JOINT DISLOCATION [None]
  - OVERDOSE [None]
